FAERS Safety Report 13301423 (Version 1)
Quarter: 2017Q1

REPORT INFORMATION
  Report Type: Spontaneous
  Country: DK (occurrence: DK)
  Receive Date: 20170307
  Receipt Date: 20170307
  Transmission Date: 20170428
  Serious: Yes (Hospitalization, Other)
  Sender: FDA-Public Use
  Company Number: DK-AUROBINDO-AUR-APL-2017-30777

PATIENT
  Age: 61 Year
  Sex: Female

DRUGS (2)
  1. FROVATRIPTAN. [Suspect]
     Active Substance: FROVATRIPTAN
     Indication: MIGRAINE
     Route: 065
  2. RIZATRIPTAN AUROBINDO [Suspect]
     Active Substance: RIZATRIPTAN
     Indication: MIGRAINE
     Route: 065

REACTIONS (2)
  - Acute myocardial infarction [Recovered/Resolved]
  - Medication overuse headache [Unknown]
